FAERS Safety Report 6296235-6 (Version None)
Quarter: 2009Q3

REPORT INFORMATION
  Report Type: 
  Country: None (occurrence: None)
  Receive Date: 20090803
  Receipt Date: 20090803
  Transmission Date: 20100115
  Serious: Yes (Other)
  Sender: FDA-Public Use
  Company Number: None

PATIENT
  Age: 74 Year
  Sex: Male
  Weight: 83.9154 kg

DRUGS (1)
  1. FLOMAX [Suspect]
     Indication: PROSTATIC DISORDER
     Dosage: ONE CAPSULE DAILY PO
     Route: 048
     Dates: start: 20090731, end: 20090801

REACTIONS (5)
  - ACTIVITIES OF DAILY LIVING IMPAIRED [None]
  - GAIT DISTURBANCE [None]
  - PRESYNCOPE [None]
  - VERTIGO [None]
  - VISUAL IMPAIRMENT [None]
